FAERS Safety Report 9712774 (Version 2)
Quarter: 2013Q4

REPORT INFORMATION
  Report Type: Spontaneous
  Country: US (occurrence: US)
  Receive Date: 20131126
  Receipt Date: 20131126
  Transmission Date: 20140711
  Serious: No
  Sender: FDA-Public Use
  Company Number: US-PFIZER INC-2013316889

PATIENT
  Age: 53 Year
  Sex: Male
  Weight: 102 kg

DRUGS (6)
  1. ATENOLOL [Suspect]
     Indication: GOUT
     Dosage: 300 MG, 1X/DAY
  2. LYRICA [Suspect]
     Indication: NEUROPATHY PERIPHERAL
     Dosage: 150 MG, 1X/DAY
     Dates: start: 201310
  3. METFORMIN [Concomitant]
     Indication: DIABETES MELLITUS
     Dosage: 1000 MG, 1X/DAY
  4. NESINA [Concomitant]
     Indication: DIABETES MELLITUS
     Dosage: 25 MG, 1X/DAY
  5. LISINOPRIL W/HYDROCHLOROTHIAZIDE [Concomitant]
     Indication: HYPERTENSION
     Dosage: 20 MG LISINOPRIL/12.5MG HYDROCHLOROTHIAZIDE 2X/DAY
  6. CARVEDILOL [Concomitant]
     Indication: HYPERTENSION
     Dosage: 25 MG, 2X/DAY

REACTIONS (2)
  - Somnolence [Unknown]
  - Off label use [Unknown]
